FAERS Safety Report 15426127 (Version 1)
Quarter: 2018Q3

REPORT INFORMATION
  Report Type: Spontaneous
  Country: ES (occurrence: ES)
  Receive Date: 20180925
  Receipt Date: 20180925
  Transmission Date: 20181010
  Serious: Yes (Hospitalization)
  Sender: FDA-Public Use
  Company Number: ES-PURDUE PHARMA-GBR-2018-0059454

PATIENT
  Age: 81 Year
  Sex: Female

DRUGS (2)
  1. MORPHINE SULFATE. [Suspect]
     Active Substance: MORPHINE SULFATE
     Indication: NEURALGIA
     Dosage: 20 MG, UNK
     Route: 065
  2. MORPHINE SULFATE. [Suspect]
     Active Substance: MORPHINE SULFATE
     Indication: NEURALGIA
     Dosage: 60 MG, Q12H (1 DOSAGE 60 MG EVERY 12 HOUR(S))
     Route: 065

REACTIONS (6)
  - Myoclonus [Recovered/Resolved]
  - Pruritus [Recovered/Resolved]
  - Toxicity to various agents [Recovered/Resolved]
  - Hypophagia [Recovered/Resolved]
  - Depressed level of consciousness [Recovered/Resolved]
  - Somnolence [Recovered/Resolved]
